FAERS Safety Report 7735615-6 (Version None)
Quarter: 2011Q3

REPORT INFORMATION
  Report Type: 
  Country: None (occurrence: None)
  Receive Date: 20110907
  Receipt Date: 20110825
  Transmission Date: 20111222
  Serious: Yes (Death)
  Sender: FDA-Public Use
  Company Number: US-RB-029806-11

PATIENT
  Sex: Female

DRUGS (2)
  1. SUBUTEX [Suspect]
     Indication: SUBSTANCE ABUSE
     Dosage: DOSE IS 4 MG EVERY 8 HOURS AS NECESSARY
     Route: 060
     Dates: start: 20110601
  2. METHADONE HCL [Suspect]
     Indication: SUBSTANCE ABUSE
     Dosage: TAPERED FROM 140 MG TO 0 MG OVER A 3-4 WEEK PERIOD
     Route: 065
     Dates: start: 20110519

REACTIONS (1)
  - DEATH [None]
